FAERS Safety Report 4420317-4 (Version None)
Quarter: 2004Q3

REPORT INFORMATION
  Report Type: 
  Country: None (occurrence: None)
  Receive Date: 20040804
  Receipt Date: 20040727
  Transmission Date: 20050211
  Serious: Yes (Hospitalization)
  Sender: FDA-Public Use
  Company Number: US-SHR-03-010418

PATIENT
  Age: 61 Year
  Sex: Male

DRUGS (6)
  1. BETASERON [Suspect]
     Indication: MULTIPLE SCLEROSIS
     Dosage: 8 MIU, EVERY 2 D, SUBCUTANEOUS
     Route: 058
     Dates: start: 19980801
  2. DETROL [Concomitant]
  3. VITAMIN E [Concomitant]
  4. GINKYO (GINKGO BILOBA) [Concomitant]
  5. TYLENOL [Concomitant]
  6. DECONGESTANTS AND ANTIALLERGICS [Concomitant]

REACTIONS (8)
  - ARTHRALGIA [None]
  - DEFAECATION URGENCY [None]
  - FAECAL INCONTINENCE [None]
  - HIP FRACTURE [None]
  - HYPOAESTHESIA [None]
  - LOCALISED OSTEOARTHRITIS [None]
  - MICTURITION URGENCY [None]
  - URINARY INCONTINENCE [None]
